FAERS Safety Report 6997398-7 (Version None)
Quarter: 2010Q3

REPORT INFORMATION
  Report Type: 
  Country: None (occurrence: None)
  Receive Date: 20100918
  Receipt Date: 20091007
  Transmission Date: 20110219
  Serious: No
  Sender: FDA-Public Use
  Company Number: US-WYE-H11524909

PATIENT
  Sex: Female

DRUGS (1)
  1. LYBREL [Suspect]
     Indication: ORAL CONTRACEPTION
     Dosage: AS DIRECTED
     Route: 048
     Dates: start: 20090917

REACTIONS (2)
  - INAPPROPRIATE SCHEDULE OF DRUG ADMINISTRATION [None]
  - MENOMETRORRHAGIA [None]
